FAERS Safety Report 15615212 (Version 2)
Quarter: 2018Q4

REPORT INFORMATION
  Report Type: Spontaneous
  Country: TH (occurrence: TH)
  Receive Date: 20181114
  Receipt Date: 20181203
  Transmission Date: 20190205
  Serious: Yes (Death, Life-Threatening, Hospitalization)
  Sender: FDA-Public Use
  Company Number: TH-B.I. PHARMACEUTICALS,INC./RIDGEFIELD-2018-BI-055283

PATIENT
  Age: 69 Year
  Sex: Male
  Weight: 120 kg

DRUGS (3)
  1. CELEBREX [Concomitant]
     Active Substance: CELECOXIB
     Indication: PRODUCT USED FOR UNKNOWN INDICATION
     Route: 065
  2. METFORMIN [Concomitant]
     Active Substance: METFORMIN HYDROCHLORIDE
     Indication: PRODUCT USED FOR UNKNOWN INDICATION
     Route: 065
  3. PRADAXA [Suspect]
     Active Substance: DABIGATRAN ETEXILATE MESYLATE
     Indication: THROMBOSIS PROPHYLAXIS
     Route: 065
     Dates: start: 20181106, end: 20181109

REACTIONS (2)
  - Gastrointestinal haemorrhage [Fatal]
  - Renal impairment [Unknown]

NARRATIVE: CASE EVENT DATE: 20181109
